FAERS Safety Report 12503418 (Version 1)
Quarter: 2016Q2

REPORT INFORMATION
  Report Type: Spontaneous
  Country: US (occurrence: None)
  Receive Date: 20160627
  Receipt Date: 20160627
  Transmission Date: 20160815
  Serious: Yes (Other)
  Sender: FDA-Public Use
  Company Number: None

PATIENT
  Age: 70 Year
  Sex: Male

DRUGS (1)
  1. ZELBORAF [Suspect]
     Active Substance: VEMURAFENIB
     Indication: PRODUCT USED FOR UNKNOWN INDICATION
     Dosage: 240 MG TAB (112 TAB/BTL) 4 - BID
     Route: 048
     Dates: start: 20150702

REACTIONS (2)
  - Malignant neoplasm progression [None]
  - Seizure [None]

NARRATIVE: CASE EVENT DATE: 201606
